FAERS Safety Report 9660823 (Version 2)
Quarter: 2013Q4

REPORT INFORMATION
  Report Type: Spontaneous
  Country: US (occurrence: US)
  Receive Date: 20131031
  Receipt Date: 20131031
  Transmission Date: 20140711
  Serious: No
  Sender: FDA-Public Use
  Company Number: US-ENDO PHARMACEUTICALS INC.-HCDA20130089

PATIENT
  Sex: Male
  Weight: 103.97 kg

DRUGS (2)
  1. HYDROCODONE BITARTRATE / ACETAMINOPHEN 10MG/325MG [Suspect]
     Indication: PAIN
     Dosage: 10/325MG
     Route: 048
     Dates: start: 201301, end: 201305
  2. AMBIEN [Concomitant]
     Indication: INSOMNIA
     Dosage: UNK
     Route: 065

REACTIONS (2)
  - Somnolence [Recovered/Resolved]
  - Hypersomnia [Recovered/Resolved]
